FAERS Safety Report 4853157-2 (Version None)
Quarter: 2005Q4

REPORT INFORMATION
  Report Type: 
  Country: None (occurrence: None)
  Receive Date: 20051212
  Receipt Date: 20051123
  Transmission Date: 20060501
  Serious: Yes (Other)
  Sender: FDA-Public Use
  Company Number: TRP_0660_2005

PATIENT
  Age: 44 Year
  Sex: Male
  Weight: 75.2971 kg

DRUGS (3)
  1. RIBASPHERE [Suspect]
     Indication: HEPATITIS C
     Dosage: 600 MG BID PO
     Route: 048
     Dates: start: 20050225, end: 20051110
  2. PEGASYS [Suspect]
     Indication: HEPATITIS C
     Dosage: 180 MCG QWK SC
     Route: 058
     Dates: start: 20050225
  3. RIBASPHERE [Suspect]
     Indication: HEPATITIS C
     Dosage: VAR QDAY PO
     Route: 048
     Dates: start: 20051110

REACTIONS (5)
  - IRRITABILITY [None]
  - LETHARGY [None]
  - MOUTH ULCERATION [None]
  - NAIL INFECTION [None]
  - WHITE BLOOD CELL COUNT DECREASED [None]
